FAERS Safety Report 6884797-7 (Version None)
Quarter: 2010Q3

REPORT INFORMATION
  Report Type: 
  Country: None (occurrence: None)
  Receive Date: 20100729
  Receipt Date: 20071004
  Transmission Date: 20110219
  Serious: Yes (Hospitalization, Other)
  Sender: FDA-Public Use
  Company Number: US-PFIZER INC-2007059255

PATIENT
  Sex: Male
  Weight: 95.3 kg

DRUGS (2)
  1. CELEBREX [Suspect]
     Indication: OSTEOARTHRITIS
     Dates: start: 20000111, end: 20011228
  2. VIOXX [Suspect]
     Indication: OSTEOARTHRITIS
     Dates: start: 20011001, end: 20020305

REACTIONS (1)
  - CEREBROVASCULAR ACCIDENT [None]
